FAERS Safety Report 8547171-3 (Version None)
Quarter: 2012Q3

REPORT INFORMATION
  Report Type: 
  Country: None (occurrence: None)
  Receive Date: 20120727
  Receipt Date: 20120223
  Transmission Date: 20120928
  Serious: No
  Sender: FDA-Public Use
  Company Number: US-ASTRAZENECA-2012SE12572

PATIENT
  Age: 57 Year
  Sex: Female
  Weight: 101.2 kg

DRUGS (5)
  1. SEROQUEL [Suspect]
     Indication: INSOMNIA
     Route: 048
     Dates: start: 20110101
  2. HALDOL [Concomitant]
  3. NUBAIN [Concomitant]
  4. SEROQUEL [Suspect]
     Indication: ANXIETY
     Route: 048
     Dates: start: 20110101
  5. CLONAZEPAM [Concomitant]

REACTIONS (2)
  - MIGRAINE [None]
  - OFF LABEL USE [None]
